FAERS Safety Report 7213513-4 (Version None)
Quarter: 2011Q1

REPORT INFORMATION
  Report Type: 
  Country: None (occurrence: None)
  Receive Date: 20110106
  Receipt Date: 20110103
  Transmission Date: 20110831
  Serious: Yes (Hospitalization)
  Sender: FDA-Public Use
  Company Number: US-JNJFOC-20110100597

PATIENT
  Sex: Female
  Weight: 77.11 kg

DRUGS (13)
  1. LIPITOR [Concomitant]
     Indication: ILL-DEFINED DISORDER
     Route: 048
  2. ATENOLOL [Concomitant]
     Indication: ILL-DEFINED DISORDER
     Route: 048
  3. FENTANYL-100 [Suspect]
     Route: 062
  4. FLEXERIL [Concomitant]
     Indication: HYPOTONIA
     Route: 048
  5. NEXIUM [Concomitant]
     Indication: ABDOMINAL DISCOMFORT
     Route: 048
  6. LYRICA [Concomitant]
     Indication: FIBROMYALGIA
     Route: 048
  7. FENTANYL-100 [Suspect]
     Indication: MIGRAINE
     Route: 062
  8. AVANDIA [Concomitant]
     Indication: DIABETES MELLITUS
     Route: 048
  9. SYNTHROID [Concomitant]
     Indication: GOITRE
     Route: 048
  10. PREMARIN [Concomitant]
     Indication: NUTRITIONAL SUPPORT
     Route: 048
  11. FENTANYL-100 [Suspect]
     Indication: MIGRAINE
     Dosage: NDC: 0781-7243-55
     Route: 062
  12. FENTANYL-100 [Suspect]
     Route: 062
  13. OXYCODONE HCL [Concomitant]
     Indication: BREAKTHROUGH PAIN
     Dosage: 10/325 MG THREE DAILY AS NEEDED
     Route: 048

REACTIONS (7)
  - SPINAL FRACTURE [None]
  - FEELING ABNORMAL [None]
  - OSTEOARTHRITIS [None]
  - FALL [None]
  - MIGRAINE [None]
  - PRODUCT QUALITY ISSUE [None]
  - PAIN [None]
